FAERS Safety Report 10639954 (Version 2)
Quarter: 2015Q1

REPORT INFORMATION
  Report Type: Spontaneous
  Country: US (occurrence: US)
  Receive Date: 20141209
  Receipt Date: 20150121
  Transmission Date: 20150720
  Serious: No
  Sender: FDA-Public Use
  Company Number: US-PFIZER INC-2014332225

PATIENT
  Age: 56 Year
  Sex: Female

DRUGS (1)
  1. LATANOPROST. [Suspect]
     Active Substance: LATANOPROST
     Indication: EYE DISORDER
     Dosage: UNK
     Dates: start: 20141124

REACTIONS (3)
  - Neck pain [Recovered/Resolved]
  - Pain in extremity [Recovered/Resolved]
  - Musculoskeletal pain [Unknown]

NARRATIVE: CASE EVENT DATE: 20141126
